FAERS Safety Report 10998836 (Version 1)
Quarter: 2015Q2

REPORT INFORMATION
  Report Type: Spontaneous
  Country: US (occurrence: US)
  Receive Date: 20150408
  Receipt Date: 20150408
  Transmission Date: 20150821
  Serious: No
  Sender: FDA-Public Use
  Company Number: US-SA-2014SA053216

PATIENT
  Age: 98 Year
  Sex: Female
  Weight: 55.34 kg

DRUGS (1)
  1. ALLEGRA [Suspect]
     Active Substance: FEXOFENADINE HYDROCHLORIDE
     Indication: COUGH
     Route: 048
     Dates: start: 20140318, end: 20140418

REACTIONS (1)
  - Drug ineffective for unapproved indication [Unknown]
